FAERS Safety Report 14613179 (Version 1)
Quarter: 2018Q1

REPORT INFORMATION
  Report Type: Spontaneous
  Country: FR (occurrence: FR)
  Receive Date: 20180308
  Receipt Date: 20180308
  Transmission Date: 20180509
  Serious: Yes (Hospitalization)
  Sender: FDA-Public Use
  Company Number: FR-JNJFOC-20180309477

PATIENT
  Age: 57 Year
  Sex: Female

DRUGS (3)
  1. HELICIDINE [Suspect]
     Active Substance: ESCARGOT
     Indication: COUGH
     Route: 048
     Dates: start: 20171205, end: 20171207
  2. TRAMADOL HYDROCHLORIDE. [Suspect]
     Active Substance: TRAMADOL HYDROCHLORIDE
     Indication: SCIATICA
     Route: 048
     Dates: end: 20171218
  3. ORDIPHA [Suspect]
     Active Substance: AZITHROMYCIN DIHYDRATE
     Indication: BRONCHITIS
     Route: 048
     Dates: start: 20171205, end: 20171207

REACTIONS (1)
  - Thrombocytopenic purpura [Recovering/Resolving]
